FAERS Safety Report 9796535 (Version 1)
Quarter: 2014Q1

REPORT INFORMATION
  Report Type: Report from Study
  Country: US (occurrence: US)
  Receive Date: 20140103
  Receipt Date: 20140103
  Transmission Date: 20141002
  Serious: Yes (Death)
  Sender: FDA-Public Use
  Company Number: US-PFIZER INC-2013374700

PATIENT
  Sex: 0

DRUGS (4)
  1. GEMCITABINE HYDROCHLORIDE [Suspect]
     Indication: PLASMA CELL MYELOMA
     Dosage: ON DAYS -8 AND -3 AS A LOADING DOSE OF 75 MG/M2
  2. GEMCITABINE HYDROCHLORIDE [Suspect]
     Dosage: FDR INFUSION OF 1,800 MG/M2
  3. BUSULFAN [Suspect]
     Indication: PLASMA CELL MYELOMA
     Dosage: DAYS -8 TO -5 TARGETING AUC 4,000/DAY X 4
  4. MELPHALAN [Suspect]
     Indication: PLASMA CELL MYELOMA
     Dosage: 60 MG/M2/DAY X 2 (DAYS -3 AND -2)

REACTIONS (1)
  - Pneumonia [Fatal]
